FAERS Safety Report 4627674-4 (Version None)
Quarter: 2005Q2

REPORT INFORMATION
  Report Type: 
  Country: None (occurrence: None)
  Receive Date: 20050401
  Receipt Date: 20050401
  Transmission Date: 20051028
  Serious: Yes (Hospitalization, Other)
  Sender: FDA-Public Use
  Company Number: None

PATIENT
  Age: 68 Year
  Sex: Female
  Weight: 74.8435 kg

DRUGS (1)
  1. MUCINEX [Suspect]
     Indication: PRODUCTIVE COUGH
     Dosage: 600MG BID ORAL
     Route: 048
     Dates: start: 20050325, end: 20050325

REACTIONS (2)
  - CHEST DISCOMFORT [None]
  - DYSPNOEA [None]
